FAERS Safety Report 5394420-9 (Version None)
Quarter: 2007Q3

REPORT INFORMATION
  Report Type: 
  Country: None (occurrence: None)
  Receive Date: 20070723
  Receipt Date: 20070424
  Transmission Date: 20080115
  Serious: No
  Sender: FDA-Public Use
  Company Number: US-AMGEN-US221272

PATIENT
  Sex: Female

DRUGS (2)
  1. VECTIBIX [Suspect]
     Indication: COLORECTAL CANCER
     Dates: start: 20070106
  2. BENADRYL [Concomitant]

REACTIONS (5)
  - ACNE [None]
  - ATELECTASIS [None]
  - CARCINOEMBRYONIC ANTIGEN INCREASED [None]
  - OEDEMA PERIPHERAL [None]
  - RASH PRURITIC [None]
